FAERS Safety Report 23783698 (Version 1)
Quarter: 2024Q2

REPORT INFORMATION
  Report Type: Spontaneous
  Country: SE (occurrence: SE)
  Receive Date: 20240425
  Receipt Date: 20240425
  Transmission Date: 20240716
  Serious: Yes (Death, Other)
  Sender: FDA-Public Use
  Company Number: None

PATIENT
  Age: 26 Year
  Sex: Male

DRUGS (17)
  1. TRIMEPRAZINE [Suspect]
     Active Substance: TRIMEPRAZINE
     Indication: Product used for unknown indication
     Dosage: UNK
     Route: 065
  2. CANNABIS SATIVA SUBSP. INDICA TOP [Suspect]
     Active Substance: CANNABIS SATIVA SUBSP. INDICA TOP
     Indication: Product used for unknown indication
     Dosage: UNK
     Route: 065
  3. DIAZEPAM [Suspect]
     Active Substance: DIAZEPAM
     Indication: Product used for unknown indication
     Dosage: UNK
     Route: 065
  4. REMERON [Suspect]
     Active Substance: MIRTAZAPINE
     Indication: Product used for unknown indication
     Dosage: UNK
     Route: 065
  5. HERBALS\TETRAHYDROCANNABINOL UNSPECIFIED [Suspect]
     Active Substance: HERBALS\TETRAHYDROCANNABINOL UNSPECIFIED
     Indication: Product used for unknown indication
     Dosage: UNK
     Route: 065
  6. ZOPICLONE [Suspect]
     Active Substance: ZOPICLONE
     Indication: Product used for unknown indication
     Dosage: UNK, SPRAY
     Route: 065
  7. ALPRAZOLAM [Interacting]
     Active Substance: ALPRAZOLAM
     Indication: Product used for unknown indication
     Dosage: UNK
     Route: 065
  8. BUPRENORPHINE [Interacting]
     Active Substance: BUPRENORPHINE
     Indication: Overdose
     Dosage: UNK
     Route: 065
  9. CARBAMAZEPINE [Interacting]
     Active Substance: CARBAMAZEPINE
     Indication: Product used for unknown indication
     Dosage: UNK
     Route: 065
  10. CLONAZEPAM [Interacting]
     Active Substance: CLONAZEPAM
     Indication: Product used for unknown indication
     Dosage: UNK
     Route: 065
  11. DRONABINOL [Interacting]
     Active Substance: DRONABINOL
     Indication: Product used for unknown indication
     Dosage: UNK
     Route: 065
  12. FENTANYL [Interacting]
     Active Substance: FENTANYL\FENTANYL CITRATE
     Indication: Product used for unknown indication
     Dosage: UNK, OTHER
     Route: 065
  13. GABAPENTIN [Interacting]
     Active Substance: GABAPENTIN
     Indication: Product used for unknown indication
     Dosage: UNK
     Route: 065
  14. MIRTAZAPINE [Interacting]
     Active Substance: MIRTAZAPINE
     Indication: Overdose
     Dosage: UNK
     Route: 065
  15. METHYLPHENIDATE [Interacting]
     Active Substance: METHYLPHENIDATE
     Indication: Product used for unknown indication
     Dosage: UNK
     Route: 065
  16. PREGABALIN [Interacting]
     Active Substance: PREGABALIN
     Indication: Product used for unknown indication
     Dosage: UNK UNK, QD
     Route: 065
  17. PREGABALIN [Interacting]
     Active Substance: PREGABALIN
     Dosage: UNK
     Route: 065

REACTIONS (7)
  - Pulmonary oedema [Fatal]
  - Brain oedema [Fatal]
  - Toxicity to various agents [Fatal]
  - Drug interaction [Fatal]
  - Drug tolerance [Fatal]
  - Drug abuse [Fatal]
  - Accidental overdose [Fatal]
